FAERS Safety Report 11792788 (Version 1)
Quarter: 2015Q4

REPORT INFORMATION
  Report Type: Spontaneous
  Country: US (occurrence: None)
  Receive Date: 20151130
  Receipt Date: 20151130
  Transmission Date: 20160305
  Serious: Yes (Other)
  Sender: FDA-Public Use
  Company Number: 2015US-106770

PATIENT
  Sex: Female

DRUGS (3)
  1. GABAPENTIN (GABAPENTIN) [Concomitant]
     Active Substance: GABAPENTIN
  2. PREMARIN [Concomitant]
     Active Substance: ESTROGENS, CONJUGATED
  3. TRAMADOL (TRAMADOL) TABLET, 50 MG [Suspect]
     Active Substance: TRAMADOL
     Indication: PRODUCT USED FOR UNKNOWN INDICATION
     Dosage: (1 DF AT MORNING, 1 DF AT NOON AND 2 DF AT NIGHT)
     Dates: start: 20151020

REACTIONS (6)
  - Therapeutic response decreased [None]
  - Drug withdrawal syndrome [None]
  - Anger [None]
  - Nervousness [None]
  - Product substitution issue [None]
  - Paranoia [None]

NARRATIVE: CASE EVENT DATE: 2015
